FAERS Safety Report 8439953-3 (Version None)
Quarter: 2012Q2

REPORT INFORMATION
  Report Type: 
  Country: None (occurrence: None)
  Receive Date: 20120611
  Receipt Date: 20120611
  Transmission Date: 20120825
  Serious: Yes (Other)
  Sender: FDA-Public Use
  Company Number: None

PATIENT
  Sex: Female
  Weight: 122.4712 kg

DRUGS (10)
  1. LISINOPRIL [Concomitant]
  2. TRAMADOL HCL [Concomitant]
  3. TERBINAFINE HCL [Concomitant]
  4. WELLBUTRIN XL [Concomitant]
  5. CLONAZEPAM [Concomitant]
  6. GEODON [Concomitant]
  7. HYDROCODONE BITARTRATE AND ACETAMINOPHEN [Concomitant]
  8. ASPIRIN [Concomitant]
  9. VIIBRYD [Suspect]
     Indication: DEPRESSION
     Dosage: 40MG, 1 TABLET DAILY, PO
     Route: 048
     Dates: start: 20120430, end: 20120608
  10. LEVOTHYROXINE SODIUM [Concomitant]

REACTIONS (2)
  - OEDEMA PERIPHERAL [None]
  - SUNBURN [None]
